FAERS Safety Report 13186932 (Version 2)
Quarter: 2017Q1

REPORT INFORMATION
  Report Type: Spontaneous
  Country: US (occurrence: US)
  Receive Date: 20170206
  Receipt Date: 20170317
  Transmission Date: 20170428
  Serious: Yes (Other)
  Sender: FDA-Public Use
  Company Number: US-BRISTOL-MYERS SQUIBB COMPANY-BMS-2017-007543

PATIENT
  Age: 61 Year
  Sex: Male

DRUGS (1)
  1. OPDIVO [Suspect]
     Active Substance: NIVOLUMAB
     Indication: NON-SMALL CELL LUNG CANCER
     Dosage: 30 MG, Q2WK
     Route: 042
     Dates: start: 20160720, end: 20170114

REACTIONS (8)
  - Fatigue [Not Recovered/Not Resolved]
  - Sleep disorder [Unknown]
  - Swelling face [Recovering/Resolving]
  - Off label use [Unknown]
  - Nausea [Unknown]
  - Dyspnoea [Unknown]
  - Headache [Recovering/Resolving]
  - Decreased appetite [Unknown]

NARRATIVE: CASE EVENT DATE: 20160720
